FAERS Safety Report 6729987-9 (Version None)
Quarter: 2010Q2

REPORT INFORMATION
  Report Type: 
  Country: None (occurrence: None)
  Receive Date: 20100513
  Receipt Date: 20100505
  Transmission Date: 20101027
  Serious: Yes (Hospitalization)
  Sender: FDA-Public Use
  Company Number: GRP10000010

PATIENT
  Age: 64 Year
  Sex: Female
  Weight: 51 kg

DRUGS (2)
  1. ACTONEL WITH CALCIUM (COPACKAGED) [Suspect]
     Indication: OSTEOPOROSIS
     Dosage: 1 DOSE FORM DAILY CYCLICALLY, ORAL, 1 DOSE FORM DAILY, CYCLICALLY, ORAL
     Route: 048
     Dates: end: 20090405
  2. ACTONEL WITH CALCIUM (COPACKAGED) [Suspect]
     Indication: OSTEOPOROSIS
     Dosage: 1 DOSE FORM DAILY CYCLICALLY, ORAL, 1 DOSE FORM DAILY, CYCLICALLY, ORAL
     Route: 048
     Dates: start: 20081130

REACTIONS (6)
  - EYE PAIN [None]
  - EYE SWELLING [None]
  - EYELID OEDEMA [None]
  - HEADACHE [None]
  - OCULAR HYPERAEMIA [None]
  - ORBITAL PSEUDOTUMOUR [None]
